FAERS Safety Report 10172242 (Version 1)
Quarter: 2014Q2

REPORT INFORMATION
  Report Type: Spontaneous
  Country: US (occurrence: US)
  Receive Date: 20140515
  Receipt Date: 20140515
  Transmission Date: 20141212
  Serious: Yes (Other)
  Sender: FDA-Public Use
  Company Number: US-PFIZER INC-2014130245

PATIENT
  Sex: Female

DRUGS (4)
  1. LYRICA [Suspect]
     Dosage: 25 MG, UNK
  2. LYRICA [Interacting]
     Dosage: UNK
  3. CLONAZEPAM [Interacting]
     Dosage: UNK
  4. CLONAZEPAM [Interacting]
     Dosage: UNK

REACTIONS (4)
  - Intentional product misuse [Unknown]
  - Drug interaction [Unknown]
  - Drug dependence [Unknown]
  - Drug withdrawal syndrome [Unknown]
